FAERS Safety Report 13300653 (Version 2)
Quarter: 2017Q2

REPORT INFORMATION
  Report Type: Spontaneous
  Country: DE (occurrence: DE)
  Receive Date: 20170307
  Receipt Date: 20170406
  Transmission Date: 20170830
  Serious: Yes (Hospitalization)
  Sender: FDA-Public Use
  Company Number: DE-BIOGEN-2017BI00367112

PATIENT
  Age: 56 Year
  Sex: Female
  Weight: 81 kg

DRUGS (5)
  1. FAMPYRA [Suspect]
     Active Substance: DALFAMPRIDINE
     Indication: GAIT DISTURBANCE
     Route: 048
     Dates: start: 20150101, end: 20170201
  2. LOVAMINSULFON [Concomitant]
     Indication: PAIN
  3. VITAMIN B [Concomitant]
     Active Substance: VITAMIN B
     Indication: PROPHYLAXIS
     Route: 065
  4. LOVAMINSULFON [Concomitant]
     Indication: MUSCLE SPASTICITY
     Route: 065
  5. GILENYA [Concomitant]
     Active Substance: FINGOLIMOD HYDROCHLORIDE
     Indication: PRODUCT USED FOR UNKNOWN INDICATION
     Route: 065
     Dates: start: 20160518, end: 20161219

REACTIONS (2)
  - Multiple sclerosis [Recovered/Resolved with Sequelae]
  - Epilepsy [Recovered/Resolved]

NARRATIVE: CASE EVENT DATE: 20161219
